FAERS Safety Report 6011153-6 (Version None)
Quarter: 2008Q4

REPORT INFORMATION
  Report Type: 
  Country: None (occurrence: None)
  Receive Date: 20081217
  Receipt Date: 20081217
  Transmission Date: 20090506
  Serious: Yes (Other)
  Sender: FDA-Public Use
  Company Number: None

PATIENT
  Age: 5 Year
  Sex: Female

DRUGS (2)
  1. NEXIUM [Suspect]
     Indication: DYSPEPSIA
     Dosage: ONE PACKET -10MG- ONCE DAILY PO
     Route: 048
     Dates: start: 20081209, end: 20081216
  2. NEXIUM [Suspect]
     Indication: GASTROOESOPHAGEAL REFLUX DISEASE
     Dosage: ONE PACKET -10MG- ONCE DAILY PO
     Route: 048
     Dates: start: 20081209, end: 20081216

REACTIONS (2)
  - ABDOMINAL PAIN UPPER [None]
  - VOMITING [None]
